FAERS Safety Report 10090510 (Version 2)
Quarter: 2014Q2

REPORT INFORMATION
  Report Type: Report from Study
  Country: AU (occurrence: AU)
  Receive Date: 20140421
  Receipt Date: 20140502
  Transmission Date: 20141212
  Serious: Yes (Other)
  Sender: FDA-Public Use
  Company Number: PHHY2014AU047939

PATIENT
  Age: 82 Year
  Sex: Female

DRUGS (2)
  1. ACLASTA [Suspect]
     Dosage: 5 MG, UNK
     Route: 042
  2. ACLASTA [Suspect]
     Dosage: 5 MG, UNK
     Route: 042
     Dates: start: 20130412

REACTIONS (6)
  - Pyogenic granuloma [Unknown]
  - Inflammation [Unknown]
  - Excessive granulation tissue [Unknown]
  - Abscess [Recovering/Resolving]
  - Swelling [Recovering/Resolving]
  - Malaise [Recovering/Resolving]
